FAERS Safety Report 4867255-0 (Version None)
Quarter: 2005Q4

REPORT INFORMATION
  Report Type: 
  Country: None (occurrence: None)
  Receive Date: 20051228
  Receipt Date: 20051220
  Transmission Date: 20060501
  Serious: Yes (Hospitalization)
  Sender: FDA-Public Use
  Company Number: US-JNJFOC-20051204886

PATIENT
  Sex: Female
  Weight: 44.45 kg

DRUGS (1)
  1. FENTANYL [Suspect]
     Route: 062

REACTIONS (2)
  - PAIN [None]
  - THERAPEUTIC RESPONSE DECREASED [None]
